FAERS Safety Report 9699083 (Version 1)
Quarter: 2013Q4

REPORT INFORMATION
  Report Type: Spontaneous
  Country: US (occurrence: None)
  Receive Date: 20131104
  Receipt Date: 20131104
  Transmission Date: 20140711
  Serious: Yes (Hospitalization, Other)
  Sender: FDA-Public Use
  Company Number: 2013038684

PATIENT
  Age: 64 Year
  Sex: Male

DRUGS (1)
  1. ZEMAIRA [Suspect]
     Indication: ALPHA-1 ANTI-TRYPSIN DEFICIENCY
     Route: 042
     Dates: end: 201004

REACTIONS (4)
  - Respiratory tract infection [None]
  - Thrombosis [None]
  - Lung infection [None]
  - Pulmonary embolism [None]
